FAERS Safety Report 25517422 (Version 1)
Quarter: 2025Q3

REPORT INFORMATION
  Report Type: Spontaneous
  Country: TW (occurrence: TW)
  Receive Date: 20250704
  Receipt Date: 20250704
  Transmission Date: 20251021
  Serious: Yes (Hospitalization, Other)
  Sender: ASTELLAS
  Company Number: TW-ASTELLAS-2023US005117

PATIENT
  Age: 54 Year
  Sex: Male

DRUGS (1)
  1. PROGRAF [Suspect]
     Active Substance: TACROLIMUS
     Indication: Prophylaxis against transplant rejection
     Dosage: 3 MG, TWICE DAILY
     Route: 048
     Dates: start: 202210

REACTIONS (4)
  - Transplant rejection [Recovering/Resolving]
  - Immunosuppressant drug level abnormal [Recovering/Resolving]
  - Hepatic function abnormal [Recovering/Resolving]
  - Jaundice [Recovering/Resolving]

NARRATIVE: CASE EVENT DATE: 20230101
